FAERS Safety Report 4741592-2 (Version None)
Quarter: 2005Q3

REPORT INFORMATION
  Report Type: 
  Country: None (occurrence: None)
  Receive Date: 20050801
  Receipt Date: 20050628
  Transmission Date: 20060218
  Serious: No
  Sender: FDA-Public Use
  Company Number: 2005PV000165

PATIENT
  Age: 74 Year
  Sex: Female
  Weight: 64.8644 kg

DRUGS (16)
  1. BYETTA [Suspect]
     Indication: DIABETES MELLITUS NON-INSULIN-DEPENDENT
     Dosage: 5 UG;BID;SC
     Route: 058
     Dates: start: 20050623
  2. AMARYL [Concomitant]
  3. EYE DROPS [Concomitant]
  4. AVAPRO [Concomitant]
  5. TOPROL-XL [Concomitant]
  6. DIGOXIN [Concomitant]
  7. ACTONEL [Concomitant]
  8. LASIX [Concomitant]
  9. THIAMINE [Concomitant]
  10. LEXAPRO [Concomitant]
  11. DARVOCET-N 100 [Concomitant]
  12. FLOMAX [Concomitant]
  13. ZOCOR [Concomitant]
  14. NEXIUM [Concomitant]
  15. NORVASC [Concomitant]
  16. PEPTO-BISMOL [Concomitant]

REACTIONS (1)
  - FAECES DISCOLOURED [None]
